FAERS Safety Report 11501935 (Version 2)
Quarter: 2015Q4

REPORT INFORMATION
  Report Type: Spontaneous
  Country: US (occurrence: US)
  Receive Date: 20150914
  Receipt Date: 20151008
  Transmission Date: 20160304
  Serious: Yes (Other)
  Sender: FDA-Public Use
  Company Number: US-PFIZER INC-2015304998

PATIENT
  Age: 73 Year
  Sex: Female

DRUGS (2)
  1. WARFARIN [Suspect]
     Active Substance: WARFARIN
     Dosage: UNK
  2. CELEBREX [Suspect]
     Active Substance: CELECOXIB
     Indication: ARTHRITIS
     Dosage: 200 MG, 1X/DAY, IN THE MORNING
     Route: 048

REACTIONS (5)
  - Fall [Unknown]
  - Pruritus [Unknown]
  - International normalised ratio increased [Unknown]
  - Femur fracture [Unknown]
  - Skin exfoliation [Unknown]

NARRATIVE: CASE EVENT DATE: 200802
